FAERS Safety Report 15473415 (Version 2)
Quarter: 2018Q4

REPORT INFORMATION
  Report Type: Spontaneous
  Country: IT (occurrence: IT)
  Receive Date: 20181008
  Receipt Date: 20181019
  Transmission Date: 20190205
  Serious: Yes (Other)
  Sender: FDA-Public Use
  Company Number: IT-PFIZER INC-2018400898

PATIENT
  Age: 49 Year
  Sex: Female

DRUGS (5)
  1. IBRANCE [Suspect]
     Active Substance: PALBOCICLIB
     Indication: BREAST CANCER
     Dosage: 100 MG, DAILY
     Route: 048
     Dates: start: 20180612, end: 20180918
  2. DIBASE [Concomitant]
     Active Substance: CHOLECALCIFEROL
     Dosage: UNK
     Dates: start: 20171130
  3. TRIPTORELIN [Concomitant]
     Active Substance: TRIPTORELIN
     Dosage: UNK
     Dates: start: 20160811
  4. FASLODEX [Concomitant]
     Active Substance: FULVESTRANT
     Indication: BREAST CANCER METASTATIC
     Dosage: UNK
     Dates: start: 20180612
  5. ZOLEDRONIC ACID MYLAN [Concomitant]
     Active Substance: ZOLEDRONIC ACID
     Dosage: UNK
     Dates: start: 20171130

REACTIONS (1)
  - Pseudocirrhosis [Unknown]

NARRATIVE: CASE EVENT DATE: 20181003
